FAERS Safety Report 7542111-8 (Version None)
Quarter: 2011Q2

REPORT INFORMATION
  Report Type: 
  Country: None (occurrence: None)
  Receive Date: 20110613
  Receipt Date: 20110531
  Transmission Date: 20111010
  Serious: Yes (Hospitalization)
  Sender: FDA-Public Use
  Company Number: JP-AMGEN-JPNCT2011027718

PATIENT
  Age: 76 Year
  Sex: Female
  Weight: 53 kg

DRUGS (21)
  1. CELECOXIB [Concomitant]
     Indication: CARPAL TUNNEL SYNDROME
     Dosage: 100 MG, PRN
     Route: 048
     Dates: start: 20101104
  2. BALANCE [Concomitant]
     Dosage: AS NEEDED
     Route: 048
     Dates: start: 20090514
  3. CAFFEINE [Concomitant]
     Indication: HEADACHE
     Dosage: 0.03 G, UNK
     Route: 048
     Dates: start: 20090514
  4. SELBEX [Concomitant]
     Indication: GASTRITIS PROPHYLAXIS
     Dosage: 0.5 G, UNK
     Route: 048
     Dates: start: 20090514
  5. DENOSUMAB [Suspect]
     Indication: OSTEOPOROSIS
     Dosage: 60 MG, Q6MO
     Route: 058
     Dates: start: 20110210
  6. CALCICHEW D3 [Concomitant]
     Dosage: UNK
     Route: 048
     Dates: start: 20090123
  7. HIRUDOID [Concomitant]
     Dosage: AS NEEDED, OPTIMUM DOSE
     Route: 062
     Dates: start: 20100709
  8. HIRUDOID SOFT [Concomitant]
     Indication: CARPAL TUNNEL SYNDROME
     Dosage: AS NEEDED, OPTIMUM DOSE
     Route: 062
     Dates: start: 20100709
  9. LANSOPRAZOLE [Concomitant]
     Indication: REFLUX OESOPHAGITIS
     Route: 048
     Dates: start: 20110210
  10. METHYCOOL [Concomitant]
     Indication: CARPAL TUNNEL SYNDROME
     Dosage: 500 A?G, UNK
     Route: 048
     Dates: start: 20100521
  11. LOXONIN [Concomitant]
     Dosage: AS NEEDED
     Route: 048
     Dates: start: 20090514
  12. NEUROTROPIN [Concomitant]
     Indication: BACK PAIN
     Dosage: 12 IU, UNK
     Route: 048
     Dates: start: 20090116
  13. CELECOXIB [Concomitant]
     Dosage: AS NEEDED
     Route: 048
     Dates: start: 20101104
  14. LANSOPRAZOLE [Concomitant]
     Dosage: 15 MG, UNK
     Route: 048
     Dates: start: 20110210
  15. BALANCE [Concomitant]
     Indication: HEADACHE
     Dosage: 0.05 G, UNK
     Route: 048
     Dates: start: 20090514
  16. ROBAXIN [Concomitant]
     Dosage: AS NEEDED
     Route: 048
     Dates: start: 20090514
  17. LOXONIN [Concomitant]
     Indication: HEADACHE
     Dosage: 0.6 G, PRN
     Route: 048
     Dates: start: 20090514
  18. SELBEX [Concomitant]
     Dosage: AS NEEDED
     Route: 048
     Dates: start: 20090514
  19. NEW CALCICHEW D3 [Concomitant]
     Indication: OSTEOPOROSIS
     Route: 048
     Dates: start: 20090123
  20. ROBAXIN [Concomitant]
     Indication: HEADACHE
     Dosage: 0.25 G, UNK
     Route: 048
     Dates: start: 20090514
  21. CAFFEINE [Concomitant]
     Dosage: AS NEEDED
     Route: 048
     Dates: start: 20090514

REACTIONS (1)
  - INTRACRANIAL ANEURYSM [None]
